FAERS Safety Report 12266902 (Version 1)
Quarter: 2016Q2

REPORT INFORMATION
  Report Type: Report from Study
  Country: US (occurrence: US)
  Receive Date: 20160414
  Receipt Date: 20160414
  Transmission Date: 20160815
  Serious: Yes (Hospitalization, Other)
  Sender: FDA-Public Use
  Company Number: US-GILEAD-2016-0204386

PATIENT
  Age: 75 Year
  Sex: Female

DRUGS (9)
  1. AMBRISENTAN [Suspect]
     Active Substance: AMBRISENTAN
     Indication: PRODUCT USED FOR UNKNOWN INDICATION
     Dosage: 10 MG, QD
     Route: 065
     Dates: start: 20160309
  2. LEVOTHYROXINE. [Concomitant]
     Active Substance: LEVOTHYROXINE
  3. SODIUM CHLORIDE NASAL SPRAY [Concomitant]
  4. ADCIRCA [Concomitant]
     Active Substance: TADALAFIL
  5. REMODULIN [Concomitant]
     Active Substance: TREPROSTINIL
  6. PANTOPRAZOLE [Concomitant]
     Active Substance: PANTOPRAZOLE SODIUM
  7. WARFARIN [Concomitant]
     Active Substance: WARFARIN
  8. DOCUSATE [Concomitant]
     Active Substance: DOCUSATE
  9. ASPIRIN 81 [Concomitant]
     Active Substance: ASPIRIN

REACTIONS (4)
  - Organising pneumonia [Unknown]
  - Normochromic normocytic anaemia [Unknown]
  - Lymphadenopathy mediastinal [Unknown]
  - Catheterisation cardiac [Unknown]
